FAERS Safety Report 7615667-4 (Version None)
Quarter: 2011Q3

REPORT INFORMATION
  Report Type: 
  Country: None (occurrence: None)
  Receive Date: 20110711
  Receipt Date: 20110627
  Transmission Date: 20111222
  Serious: Yes (Hospitalization)
  Sender: FDA-Public Use
  Company Number: UTC-007601

PATIENT
  Age: 65 Year
  Sex: Female

DRUGS (1)
  1. TYVASO [Suspect]
     Indication: PULMONARY HYPERTENSION
     Dosage: UP TO 54 MIRCOGRAMS ( 4 IN 1 D), INHALATION
     Route: 055

REACTIONS (3)
  - DYSPNOEA [None]
  - TREMOR [None]
  - UROSEPSIS [None]
